FAERS Safety Report 8981559 (Version 1)
Quarter: 2012Q4

REPORT INFORMATION
  Report Type: 
  Country: GB (occurrence: GB)
  Receive Date: 20121223
  Receipt Date: 20121223
  Transmission Date: 20130627
  Serious: Yes (Other)
  Sender: FDA-Public Use
  Company Number: GB-JNJFOC-20121209034

PATIENT
  Age: 21 Year
  Sex: Male

DRUGS (15)
  1. XARELTO [Suspect]
     Indication: PULMONARY EMBOLISM
     Route: 048
  2. XARELTO [Suspect]
     Indication: PULMONARY EMBOLISM
     Route: 048
     Dates: start: 20121116
  3. ASPIRIN [Concomitant]
     Route: 065
  4. PARACETAMOL [Concomitant]
     Route: 065
  5. LAXIDO [Concomitant]
     Route: 065
  6. ZOPICLONE [Concomitant]
     Route: 065
  7. MAGNESIUM GLYCEROPHOSPHATE [Concomitant]
     Route: 065
  8. METOLAZONE [Concomitant]
     Route: 065
  9. NEFOPAM [Concomitant]
     Route: 065
  10. SENNA [Concomitant]
     Route: 065
  11. ZOMORPH [Concomitant]
     Route: 065
  12. LANSOPRAZOLE [Concomitant]
     Route: 065
  13. FUROSEMIDE [Concomitant]
     Route: 065
  14. EPLERENONE [Concomitant]
     Route: 065
  15. LEVETIRACETAM [Concomitant]
     Route: 065

REACTIONS (1)
  - Haematemesis [Recovering/Resolving]
